FAERS Safety Report 8380308-8 (Version None)
Quarter: 2012Q2

REPORT INFORMATION
  Report Type: 
  Country: None (occurrence: None)
  Receive Date: 20120523
  Receipt Date: 20120514
  Transmission Date: 20120825
  Serious: Yes (Hospitalization)
  Sender: FDA-Public Use
  Company Number: US-ASTRAZENECA-2009UW09611

PATIENT
  Age: 50 Year
  Sex: Male
  Weight: 83.9 kg

DRUGS (12)
  1. SEROQUEL [Suspect]
     Route: 048
  2. REMERON [Concomitant]
  3. AMBIEN [Concomitant]
  4. SEROQUEL [Suspect]
     Route: 048
  5. SEROQUEL [Suspect]
     Dosage: GENERIC
     Route: 048
  6. SEROQUEL [Suspect]
     Route: 048
  7. PRILOSEC [Suspect]
     Route: 048
  8. SEROQUEL [Suspect]
     Indication: DEPRESSION
     Route: 048
  9. SEROQUEL [Suspect]
     Indication: BIPOLAR DISORDER
     Route: 048
  10. SEROQUEL [Suspect]
     Dosage: GENERIC
     Route: 048
  11. NEXIUM [Suspect]
     Route: 048
  12. SEROQUEL [Suspect]
     Route: 048

REACTIONS (13)
  - LETHARGY [None]
  - MALAISE [None]
  - MENTAL DISORDER [None]
  - PERFORMANCE STATUS DECREASED [None]
  - DRUG INEFFECTIVE [None]
  - ABDOMINAL DISCOMFORT [None]
  - VOMITING [None]
  - HEADACHE [None]
  - INTENTIONAL DRUG MISUSE [None]
  - CATARACT [None]
  - INSOMNIA [None]
  - DRUG TOLERANCE DECREASED [None]
  - FEELING ABNORMAL [None]
